FAERS Safety Report 6110282-6 (Version None)
Quarter: 2009Q1

REPORT INFORMATION
  Report Type: 
  Country: None (occurrence: None)
  Receive Date: 20090310
  Receipt Date: 20090226
  Transmission Date: 20090719
  Serious: Yes (Hospitalization)
  Sender: FDA-Public Use
  Company Number: FI-ROCHE-617302

PATIENT
  Sex: Male
  Weight: 68 kg

DRUGS (7)
  1. KYTRIL [Suspect]
     Indication: DRUG USE FOR UNKNOWN INDICATION
     Dosage: FORM: INFUSION
     Route: 042
     Dates: start: 20090219, end: 20090219
  2. AVASTIN [Suspect]
     Indication: RECTAL CANCER
     Dosage: FORM: INFUSION
     Route: 042
     Dates: start: 20090219, end: 20090219
  3. OXALIPLATIN [Suspect]
     Indication: RECTAL CANCER
     Dosage: FORM: INFUSION
     Route: 042
     Dates: start: 20090219, end: 20090219
  4. ORADEXON TAB [Suspect]
     Indication: DRUG USE FOR UNKNOWN INDICATION
     Dosage: FORM: INFUSION
     Route: 042
     Dates: start: 20090219, end: 20090219
  5. LISIPRIL [Concomitant]
     Route: 048
     Dates: start: 20081207
  6. LAXOBERON [Concomitant]
  7. SOMAC [Concomitant]
     Route: 048
     Dates: start: 20080213

REACTIONS (1)
  - LARYNGOSPASM [None]
